FAERS Safety Report 6243956-7 (Version None)
Quarter: 2009Q2

REPORT INFORMATION
  Report Type: 
  Country: None (occurrence: None)
  Receive Date: 20090623
  Receipt Date: 20090615
  Transmission Date: 20091009
  Serious: Yes (Death)
  Sender: FDA-Public Use
  Company Number: 2009006839

PATIENT
  Age: 75 Year
  Sex: Male
  Weight: 232.5 kg

DRUGS (2)
  1. TREANDA [Suspect]
     Indication: CHRONIC LYMPHOCYTIC LEUKAEMIA
     Dosage: 200 MG, CYCLE 1, INTRAVENOUS
     Route: 042
     Dates: start: 20090518, end: 20090519
  2. RITUXAN [Concomitant]

REACTIONS (8)
  - ANOREXIA [None]
  - CHILLS [None]
  - CONFUSIONAL STATE [None]
  - COUGH [None]
  - CREATININE RENAL CLEARANCE DECREASED [None]
  - FATIGUE [None]
  - HYPERHIDROSIS [None]
  - SEPSIS [None]
